FAERS Safety Report 11536356 (Version 1)
Quarter: 2015Q3

REPORT INFORMATION
  Report Type: Spontaneous
  Country: BR (occurrence: BR)
  Receive Date: 20150922
  Receipt Date: 20150922
  Transmission Date: 20151125
  Serious: Yes (Death)
  Sender: FDA-Public Use
  Company Number: BR-NOVOPROD-464172

PATIENT
  Sex: Male

DRUGS (3)
  1. NOVORAPID [Suspect]
     Active Substance: INSULIN ASPART
     Indication: PRODUCT USED FOR UNKNOWN INDICATION
     Dosage: UNK (VARIABLE DOSAGE)
     Route: 065
  2. TRESIBA FLEXTOUCH U100 [Suspect]
     Active Substance: INSULIN DEGLUDEC
     Indication: PRODUCT USED FOR UNKNOWN INDICATION
     Dosage: UNK, 8 (UNITS: UNSPECIFIED)
     Route: 065
  3. TRESIBA FLEXTOUCH U100 [Suspect]
     Active Substance: INSULIN DEGLUDEC
     Dosage: UNK, 14 (UNITS: UNSPECIFIED)
     Route: 065

REACTIONS (1)
  - Respiratory tract infection [Fatal]
